FAERS Safety Report 14413567 (Version 1)
Quarter: 2018Q1

REPORT INFORMATION
  Report Type: Spontaneous
  Country: US (occurrence: US)
  Receive Date: 20180118
  Receipt Date: 20180118
  Transmission Date: 20180509
  Serious: Yes (Hospitalization)
  Sender: FDA-Public Use
  Company Number: None

PATIENT
  Age: 47 Year
  Sex: Male

DRUGS (10)
  1. NADOLOL. [Concomitant]
     Active Substance: NADOLOL
  2. ONDANSETRON [Concomitant]
     Active Substance: ONDANSETRON
  3. LOVENOX [Concomitant]
     Active Substance: ENOXAPARIN SODIUM
  4. MEKINIST [Suspect]
     Active Substance: TRAMETINIB DIMETHYL SULFOXIDE
     Indication: METASTASIS
     Route: 048
     Dates: start: 20171110
  5. GABAPENTIN. [Concomitant]
     Active Substance: GABAPENTIN
  6. OXYCODONE [Concomitant]
     Active Substance: OXYCODONE
  7. BACLOFEN. [Concomitant]
     Active Substance: BACLOFEN
  8. LOSARTAN. [Concomitant]
     Active Substance: LOSARTAN
  9. TAFINLAR [Suspect]
     Active Substance: DABRAFENIB MESYLATE
     Indication: METASTASIS
     Route: 048
     Dates: start: 20171110
  10. PREDNISONE. [Concomitant]
     Active Substance: PREDNISONE

REACTIONS (2)
  - Pyrexia [None]
  - Nausea [None]

NARRATIVE: CASE EVENT DATE: 20180118
